FAERS Safety Report 12629454 (Version 2)
Quarter: 2016Q3

REPORT INFORMATION
  Report Type: Spontaneous
  Country: FR (occurrence: FR)
  Receive Date: 20160808
  Receipt Date: 20160927
  Transmission Date: 20161109
  Serious: Yes (Other)
  Sender: FDA-Public Use
  Company Number: FR-BRISTOL-MYERS SQUIBB COMPANY-BMS-2016-063805

PATIENT

DRUGS (1)
  1. NIVOLUMAB [Suspect]
     Active Substance: NIVOLUMAB
     Indication: NON-SMALL CELL LUNG CANCER
     Route: 065

REACTIONS (7)
  - Malignant neoplasm progression [Unknown]
  - Organising pneumonia [Unknown]
  - Fatigue [Unknown]
  - Cutaneous vasculitis [Unknown]
  - Renal failure [Unknown]
  - Diarrhoea [Unknown]
  - Hypothyroidism [Unknown]
